FAERS Safety Report 5208851-0 (Version None)
Quarter: 2007Q1

REPORT INFORMATION
  Report Type: 
  Country: None (occurrence: None)
  Receive Date: 20070116
  Receipt Date: 20070108
  Transmission Date: 20070707
  Serious: Yes (Hospitalization)
  Sender: FDA-Public Use
  Company Number: GBWYE066908JAN07

PATIENT
  Sex: Female
  Weight: 79 kg

DRUGS (12)
  1. ENBREL [Suspect]
     Indication: DRUG USE FOR UNKNOWN INDICATION
     Route: 058
     Dates: start: 20061101, end: 20061220
  2. PREDNISOLONE [Concomitant]
     Dosage: UNKNOWN
  3. CALCICHEW [Concomitant]
     Dosage: UNKNOWN
  4. CO-CODAMOL [Concomitant]
     Dosage: UNKNOWN
  5. WARFARIN SODIUM [Concomitant]
     Dosage: UNKNOWN
  6. FUROSEMIDE [Concomitant]
     Dosage: UNKNOWN
  7. OMEPRAZOLE [Concomitant]
     Dosage: UNKNOWN
  8. RISEDRONATE SODIUM [Concomitant]
     Dosage: UNKNOWN
  9. SALBUTAMOL [Concomitant]
     Dosage: UNKNOWN
  10. VISCOTEARS [Concomitant]
     Dosage: UNKNOWN
  11. LEFLUNOMIDE [Concomitant]
     Dosage: UNKNOWN
  12. DIHYDROCODEINE BITARTRATE INJ [Concomitant]
     Dosage: UNKNOWN

REACTIONS (1)
  - CELLULITIS [None]
